FAERS Safety Report 6184419-7 (Version None)
Quarter: 2009Q2

REPORT INFORMATION
  Report Type: 
  Country: None (occurrence: None)
  Receive Date: 20090508
  Receipt Date: 20090429
  Transmission Date: 20091009
  Serious: Yes (Hospitalization, Other)
  Sender: FDA-Public Use
  Company Number: B0573135A

PATIENT
  Sex: Male

DRUGS (4)
  1. ARIXTRA [Suspect]
     Indication: PROPHYLAXIS
     Dosage: .5ML PER DAY
     Route: 065
     Dates: start: 20090216, end: 20090303
  2. TEMAZEPAM [Concomitant]
     Route: 048
     Dates: start: 20090224
  3. PARACETAMOL [Concomitant]
     Dosage: 1000MG FOUR TIMES PER DAY
     Route: 065
     Dates: start: 20090217
  4. LACTULOSE [Concomitant]
     Dosage: 12G PER DAY
     Route: 048
     Dates: start: 20090218

REACTIONS (2)
  - HEPARIN-INDUCED THROMBOCYTOPENIA [None]
  - THROMBOSIS [None]
